FAERS Safety Report 5347421-0 (Version None)
Quarter: 2007Q2

REPORT INFORMATION
  Report Type: 
  Country: None (occurrence: None)
  Receive Date: 20070507
  Receipt Date: 20060907
  Transmission Date: 20071010
  Serious: Yes (Hospitalization)
  Sender: FDA-Public Use
  Company Number: 2378

PATIENT
  Age: 59 Year
  Sex: Female
  Weight: 136.0791 kg

DRUGS (1)
  1. AVINZA [Suspect]
     Indication: PAIN MANAGEMENT
     Dosage: 90 MG DAILY PO
     Route: 048
     Dates: start: 20060101, end: 20060531

REACTIONS (3)
  - RESPIRATORY ALKALOSIS [None]
  - RESPIRATORY DISTRESS [None]
  - SOMNOLENCE [None]
